FAERS Safety Report 18585657 (Version 1)
Quarter: 2020Q4

REPORT INFORMATION
  Report Type: Spontaneous
  Country: US (occurrence: US)
  Receive Date: 20201203
  Receipt Date: 20201203
  Transmission Date: 20210114
  Serious: Yes (Hospitalization)
  Sender: FDA-Public Use
  Company Number: None

PATIENT
  Age: 86 Year
  Sex: Male
  Weight: 48.6 kg

DRUGS (10)
  1. AMLODIPINE BESYLATE 5MG, ORAL [Concomitant]
  2. GLIMEPIRIDE 1MG, ORAL [Concomitant]
  3. VITAMIN B12 50MCG, ORAL [Concomitant]
  4. CAPECITABINE. [Suspect]
     Active Substance: CAPECITABINE
     Indication: COLON CANCER
     Route: 048
     Dates: start: 20200215
  5. LOSARTAN POTASSIUM 25MG, ORAL [Concomitant]
  6. CARVEDILOL 6.25MG, ORAL [Concomitant]
  7. IRON 90MG, ORAL [Concomitant]
  8. METFORMIN HCL 500MG, ORAL [Concomitant]
  9. VITAMIN D3 10MCG, ORAL [Concomitant]
  10. VITAMIN C 500MG, ORAL [Concomitant]

REACTIONS (1)
  - Surgery [None]

NARRATIVE: CASE EVENT DATE: 20201203
